FAERS Safety Report 9424224 (Version 1)
Quarter: 2013Q3

REPORT INFORMATION
  Report Type: Spontaneous
  Country: BR (occurrence: BR)
  Receive Date: 20130729
  Receipt Date: 20130729
  Transmission Date: 20140515
  Serious: Yes (Hospitalization, Other)
  Sender: FDA-Public Use
  Company Number: BR-ROCHE-1253995

PATIENT
  Sex: Female

DRUGS (1)
  1. MABTHERA [Suspect]
     Indication: LUPUS NEPHRITIS
     Route: 065

REACTIONS (8)
  - Vomiting [Not Recovered/Not Resolved]
  - Malaise [Unknown]
  - Flatulence [Unknown]
  - Depression [Unknown]
  - Herpes virus infection [Recovered/Resolved]
  - Feeling of despair [Unknown]
  - Decreased appetite [Unknown]
  - Anxiety [Not Recovered/Not Resolved]
